FAERS Safety Report 10658226 (Version 1)
Quarter: 2014Q4

REPORT INFORMATION
  Report Type: Spontaneous
  Country: US (occurrence: None)
  Receive Date: 20141205
  Receipt Date: 20141205
  Transmission Date: 20150529
  Serious: Yes (Other)
  Sender: FDA-Public Use
  Company Number: 163-POMAL-14092047

PATIENT
  Age: 68 Year
  Sex: Male

DRUGS (5)
  1. IRON (IRON) (UNKNOWN) [Concomitant]
  2. POMALYST [Suspect]
     Active Substance: POMALIDOMIDE
     Indication: PLASMA CELL MYELOMA
     Dosage: 4 MG, 1 IN 1 D, PO
     Route: 048
     Dates: start: 201310
  3. VITAMIN D3 (COLECALCIFEROL) (UNKNOWN) [Concomitant]
  4. ANDROGEL (TESTOSTERONE) (UNKNOWN) [Concomitant]
  5. FIBERCONE (POLYCARBOPHIL CALCIUM) (UNKNOWN) [Concomitant]

REACTIONS (1)
  - Thrombosis [None]

NARRATIVE: CASE EVENT DATE: 201312
